FAERS Safety Report 16212220 (Version 1)
Quarter: 2019Q2

REPORT INFORMATION
  Report Type: Other
  Country: ES (occurrence: ES)
  Receive Date: 20190418
  Receipt Date: 20190418
  Transmission Date: 20190711
  Serious: Yes (Hospitalization)
  Sender: FDA-Public Use
  Company Number: ES-GLENMARK PHARMACEUTICALS-2019GMK040752

PATIENT

DRUGS (4)
  1. LORAZEPAM. [Interacting]
     Active Substance: LORAZEPAM
     Indication: SUICIDE ATTEMPT
     Dosage: 40 MG EVERY 3 MONTHS
     Route: 048
     Dates: start: 20181209, end: 20181209
  2. TRYPTIZOL [Interacting]
     Active Substance: AMITRIPTYLINE HYDROCHLORIDE
     Indication: SUICIDE ATTEMPT
     Dosage: 2.77 G, IN TOTAL
     Route: 048
     Dates: start: 20181209, end: 20181209
  3. ZALDIAR [Interacting]
     Active Substance: ACETAMINOPHEN\TRAMADOL HYDROCHLORIDE
     Indication: SUICIDE ATTEMPT
     Dosage: 632.5 MG IN TOTAL
     Route: 048
     Dates: start: 20181209, end: 20181209
  4. GABAPENTIN. [Suspect]
     Active Substance: GABAPENTIN
     Indication: SUICIDE ATTEMPT
     Dosage: 7.2 G, IN TOTAL
     Route: 048
     Dates: start: 20181209, end: 20181209

REACTIONS (2)
  - Depressed level of consciousness [Recovered/Resolved]
  - Intentional overdose [Recovered/Resolved]

NARRATIVE: CASE EVENT DATE: 20181209
